FAERS Safety Report 5446585-8 (Version None)
Quarter: 2007Q3

REPORT INFORMATION
  Report Type: 
  Country: None (occurrence: None)
  Receive Date: 20070907
  Receipt Date: 20070828
  Transmission Date: 20080115
  Serious: Yes (Other)
  Sender: FDA-Public Use
  Company Number: GB-PFIZER INC-2007072011

PATIENT
  Age: 53 Year
  Sex: Male
  Weight: 80 kg

DRUGS (7)
  1. CHANTIX [Suspect]
     Indication: SMOKING CESSATION THERAPY
     Dosage: TEXT:1 MG
     Route: 048
     Dates: start: 20070705, end: 20070720
  2. AMLODIPINE [Concomitant]
  3. CLOPIDOGREL [Concomitant]
  4. DOXAZOSIN MESYLATE [Concomitant]
  5. OMEPRAZOLE [Concomitant]
  6. PRAVASTATIN [Concomitant]
  7. RAMIPRIL [Concomitant]

REACTIONS (1)
  - SWOLLEN TONGUE [None]
